FAERS Safety Report 24881095 (Version 1)
Quarter: 2025Q1

REPORT INFORMATION
  Report Type: Report from Study
  Country: MX (occurrence: MX)
  Receive Date: 20250124
  Receipt Date: 20250124
  Transmission Date: 20250409
  Serious: Yes (Death, Hospitalization)
  Sender: ABBVIE
  Company Number: MX-ABBVIE-6100171

PATIENT
  Age: 36 Year
  Sex: Male
  Weight: 55 kg

DRUGS (1)
  1. VENCLEXTA [Suspect]
     Active Substance: VENETOCLAX
     Indication: Acute myeloid leukaemia
     Dosage: FORM STRENGTH: 100 MILLIGRAM
     Route: 048
     Dates: start: 20221213

REACTIONS (6)
  - Septic shock [Fatal]
  - Injury [Not Recovered/Not Resolved]
  - Underweight [Unknown]
  - Haemoglobin decreased [Unknown]
  - Malaise [Unknown]
  - Pain [Unknown]

NARRATIVE: CASE EVENT DATE: 20240801
